FAERS Safety Report 4320652-4 (Version None)
Quarter: 2004Q1

REPORT INFORMATION
  Report Type: 
  Country: None (occurrence: None)
  Receive Date: 20040315
  Receipt Date: 20040226
  Transmission Date: 20041129
  Serious: Yes (Death)
  Sender: FDA-Public Use
  Company Number: 227999

PATIENT
  Age: 68 Year
  Sex: Male
  Weight: 69.4 kg

DRUGS (11)
  1. NOVOSEVEN [Suspect]
     Indication: ACQUIRED HAEMOPHILIA
     Dosage: 86.5 UG/KG EVERY 3 HR, INTRAVENOUS; SEE IMAGE
     Route: 042
     Dates: start: 20030131, end: 20030201
  2. NOVOSEVEN [Suspect]
     Indication: ACQUIRED HAEMOPHILIA
     Dosage: 86.5 UG/KG EVERY 3 HR, INTRAVENOUS; SEE IMAGE
     Route: 042
     Dates: start: 20030201
  3. HUMULIN R [Concomitant]
  4. DIGOXIN [Concomitant]
  5. SELBEX (TEPRENONE) [Concomitant]
  6. FUROSEMIDE [Concomitant]
  7. PAMILCON [Concomitant]
  8. KALIAID [Concomitant]
  9. HISICEOL [Concomitant]
  10. PLASMA [Concomitant]
  11. INTRAVENOUS HYPERALIMENTATION [Concomitant]

REACTIONS (2)
  - BRAIN DEATH [None]
  - CONCOMITANT DISEASE PROGRESSION [None]
